FAERS Safety Report 6792765-9 (Version None)
Quarter: 2010Q2

REPORT INFORMATION
  Report Type: 
  Country: None (occurrence: None)
  Receive Date: 20100624
  Receipt Date: 20080925
  Transmission Date: 20101027
  Serious: No
  Sender: FDA-Public Use
  Company Number: US-PFIZER INC-2008081435

PATIENT
  Sex: Male
  Weight: 61.4 kg

DRUGS (4)
  1. SUTENT [Suspect]
     Indication: RENAL CANCER
     Dates: start: 20080401
  2. SUTENT [Suspect]
     Indication: ADRENAL CARCINOMA
  3. SUTENT [Suspect]
     Indication: HEPATIC NEOPLASM MALIGNANT
  4. DRUG USED IN DIABETES [Concomitant]
     Indication: DIABETES MELLITUS

REACTIONS (4)
  - AGEUSIA [None]
  - EPISTAXIS [None]
  - GLOSSODYNIA [None]
  - OEDEMA PERIPHERAL [None]
